FAERS Safety Report 18437609 (Version 1)
Quarter: 2020Q4

REPORT INFORMATION
  Report Type: Spontaneous
  Country: US (occurrence: US)
  Receive Date: 20201028
  Receipt Date: 20201028
  Transmission Date: 20210114
  Serious: No
  Sender: FDA-Public Use
  Company Number: US-ABBVIE-20K-163-3530339-00

PATIENT
  Sex: Female

DRUGS (1)
  1. SKYRIZI [Suspect]
     Active Substance: RISANKIZUMAB-RZAA
     Indication: PSORIASIS
     Route: 058

REACTIONS (5)
  - Joint range of motion decreased [Recovered/Resolved]
  - Asthenia [Recovered/Resolved]
  - Neurological symptom [Recovered/Resolved]
  - Musculoskeletal disorder [Recovered/Resolved]
  - Paraesthesia [Recovered/Resolved]
